FAERS Safety Report 24661768 (Version 1)
Quarter: 2024Q4

REPORT INFORMATION
  Report Type: Spontaneous
  Country: CA (occurrence: CA)
  Receive Date: 20241125
  Receipt Date: 20241125
  Transmission Date: 20250115
  Serious: Yes (Other)
  Sender: MYLAN
  Company Number: CA-MYLANLABS-2023M1082107

PATIENT
  Sex: Female

DRUGS (3)
  1. LYRICA [Suspect]
     Active Substance: PREGABALIN
     Indication: Neuropathy peripheral
     Dosage: UNK (75MG + 25MG)
     Route: 065
  2. LYRICA [Suspect]
     Active Substance: PREGABALIN
     Indication: Neuralgia
     Dosage: 25 MILLIGRAM
     Route: 065
  3. FAMTOZINAMERAN\TOZINAMERAN [Suspect]
     Active Substance: FAMTOZINAMERAN\TOZINAMERAN
     Indication: COVID-19 immunisation
     Dosage: UNK
     Route: 030

REACTIONS (18)
  - Guillain-Barre syndrome [Unknown]
  - Neuropathy peripheral [Unknown]
  - Muscular weakness [Unknown]
  - Paraesthesia [Unknown]
  - Oedema [Unknown]
  - Dizziness [Unknown]
  - Somnolence [Unknown]
  - Headache [Unknown]
  - Nausea [Unknown]
  - Dry mouth [Unknown]
  - Cough [Unknown]
  - Weight increased [Unknown]
  - Disturbance in attention [Unknown]
  - Memory impairment [Unknown]
  - Asthenia [Unknown]
  - Constipation [Unknown]
  - Vision blurred [Unknown]
  - Hypersensitivity [Unknown]
